FAERS Safety Report 7042073-6 (Version None)
Quarter: 2010Q4

REPORT INFORMATION
  Report Type: 
  Country: None (occurrence: None)
  Receive Date: 20101013
  Receipt Date: 20100521
  Transmission Date: 20110411
  Serious: No
  Sender: FDA-Public Use
  Company Number: US-ASTRAZENECA-2010SE23614

PATIENT
  Age: 58 Year
  Sex: Female
  Weight: 61.2 kg

DRUGS (6)
  1. SYMBICORT [Suspect]
     Indication: ASTHMA
     Dosage: TWO PUFFS TWO TIMES A DAY
     Route: 055
  2. SYMBICORT [Suspect]
     Indication: WHEEZING
     Dosage: TWO PUFFS TWO TIMES A DAY
     Route: 055
  3. XOPENEX HFA [Suspect]
     Indication: ASTHMA
     Route: 055
     Dates: start: 20070101
  4. XOPENEX HFA [Suspect]
     Indication: WHEEZING
     Route: 055
     Dates: start: 20070101
  5. LEVOTHROID [Concomitant]
  6. VERAPAMIL [Concomitant]

REACTIONS (2)
  - GINGIVAL PAIN [None]
  - GINGIVAL RECESSION [None]
